FAERS Safety Report 20235846 (Version 1)
Quarter: 2021Q4

REPORT INFORMATION
  Report Type: Spontaneous
  Country: NL (occurrence: NL)
  Receive Date: 20211228
  Receipt Date: 20211228
  Transmission Date: 20220303
  Serious: Yes (Death)
  Sender: FDA-Public Use
  Company Number: NL-ALEMBIC-2021SCAL000580

PATIENT

DRUGS (8)
  1. VENLAFAXINE [Interacting]
     Active Substance: VENLAFAXINE HYDROCHLORIDE
     Indication: Stress
     Dosage: 37.5 MG, QD
     Route: 065
  2. VENLAFAXINE [Interacting]
     Active Substance: VENLAFAXINE HYDROCHLORIDE
     Indication: Sleep disorder
  3. OXAZEPAM [Interacting]
     Active Substance: OXAZEPAM
     Indication: Stress
     Dosage: UNK
     Route: 065
  4. OXAZEPAM [Interacting]
     Active Substance: OXAZEPAM
     Indication: Sleep disorder
  5. ZOPICLONE [Interacting]
     Active Substance: ZOPICLONE
     Indication: Stress
     Dosage: UNK
     Route: 065
  6. ZOPICLONE [Interacting]
     Active Substance: ZOPICLONE
     Indication: Sleep disorder
  7. TEMAZEPAM [Interacting]
     Active Substance: TEMAZEPAM
     Indication: Stress
     Dosage: 10 MG, QD
     Route: 065
  8. TEMAZEPAM [Interacting]
     Active Substance: TEMAZEPAM
     Indication: Sleep disorder

REACTIONS (3)
  - Completed suicide [Fatal]
  - Product dose omission issue [Unknown]
  - Drug withdrawal syndrome [Unknown]
